FAERS Safety Report 20845901 (Version 4)
Quarter: 2023Q1

REPORT INFORMATION
  Report Type: Report from Study
  Country: JP (occurrence: JP)
  Receive Date: 20220518
  Receipt Date: 20230324
  Transmission Date: 20230417
  Serious: No
  Sender: FDA-Public Use
  Company Number: JP-BIOGEN-2022BI01109100

PATIENT
  Sex: Female
  Weight: 9.15 kg

DRUGS (8)
  1. SPINRAZA [Suspect]
     Active Substance: NUSINERSEN
     Indication: Spinal muscular atrophy
     Route: 050
     Dates: start: 20180117
  2. SPINRAZA [Suspect]
     Active Substance: NUSINERSEN
     Route: 050
     Dates: start: 20200715
  3. SPINRAZA [Suspect]
     Active Substance: NUSINERSEN
     Route: 050
     Dates: start: 20220415, end: 20220415
  4. FAMOTIDINE [Concomitant]
     Active Substance: FAMOTIDINE
     Indication: Spinal muscular atrophy
     Route: 050
  5. CARBOCYSTEINE [Concomitant]
     Active Substance: CARBOCYSTEINE
     Indication: Spinal muscular atrophy
     Route: 050
  6. MAGNESIUM OXIDE [Concomitant]
     Active Substance: MAGNESIUM OXIDE
     Indication: Spinal muscular atrophy
     Dosage: TOTAL DAILY DOSE: 0.4 G AS THE DRUG PRODUCT MASS
     Route: 050
     Dates: start: 20210114, end: 20210415
  7. EMLA [Concomitant]
     Active Substance: LIDOCAINE\PRILOCAINE
     Indication: Anaesthesia procedure
     Route: 050
  8. GLYCERIN [Concomitant]
     Active Substance: GLYCERIN
     Indication: Spinal muscular atrophy
     Route: 050

REACTIONS (1)
  - No adverse event [Unknown]
